FAERS Safety Report 7951949-4 (Version None)
Quarter: 2011Q4

REPORT INFORMATION
  Report Type: 
  Country: None (occurrence: None)
  Receive Date: 20111201
  Receipt Date: 20111124
  Transmission Date: 20120403
  Serious: Yes (Other)
  Sender: FDA-Public Use
  Company Number: BR-PFIZER INC-2011288137

PATIENT
  Age: 50 Year
  Sex: Male

DRUGS (7)
  1. EFFEXOR XR [Suspect]
     Dosage: 150 MG, 1X/DAY
     Route: 048
  2. CLONAZEPAM [Concomitant]
     Dosage: 2MG DAILY
  3. EFFEXOR XR [Suspect]
     Dosage: 75 MG, 1X/DAY
  4. ZOLOFT [Suspect]
     Indication: DEPRESSION
     Dosage: 100 MG, 1X/DAY
     Route: 048
  5. EFFEXOR XR [Suspect]
     Indication: DEPRESSION
     Dosage: 75 MG, 1X/DAY
     Route: 048
  6. PRISTIQ [Suspect]
     Indication: DEPRESSION
     Dosage: 100 MG, 1X/DAY
     Route: 048
  7. ASPIRIN [Concomitant]
     Indication: BLOOD DISORDER
     Dosage: ONE TABLET DAILY
     Dates: start: 20070101

REACTIONS (8)
  - ANXIETY [None]
  - FEAR [None]
  - ASTHENIA [None]
  - DRUG INEFFECTIVE [None]
  - DEPRESSION [None]
  - HEAD DISCOMFORT [None]
  - TREMOR [None]
  - VERTIGO [None]
